FAERS Safety Report 7043472-9 (Version None)
Quarter: 2010Q3

REPORT INFORMATION
  Report Type: 
  Country: None (occurrence: None)
  Receive Date: 20100929
  Receipt Date: 20100617
  Transmission Date: 20110219
  Serious: No
  Sender: FDA-Public Use
  Company Number: US-WYE-H16088510

PATIENT
  Age: 31 Year
  Sex: Female
  Weight: 63.56 kg

DRUGS (3)
  1. PRISTIQ [Suspect]
     Indication: DEPRESSION
     Dosage: 50 MG 1X PER 1 DAY
     Dates: start: 20090101
  2. ADDERALL (AMFETAMIN ASPARTATE/AMFETAMIN SULFATE/DEXAMFETAMIN SACCHARAT [Concomitant]
  3. MULTI-VITAMINS [Concomitant]

REACTIONS (1)
  - ALOPECIA [None]
